FAERS Safety Report 7659428-9 (Version None)
Quarter: 2011Q3

REPORT INFORMATION
  Report Type: 
  Country: None (occurrence: None)
  Receive Date: 20110805
  Receipt Date: 20110722
  Transmission Date: 20111222
  Serious: Yes (Disabling, Other)
  Sender: FDA-Public Use
  Company Number: GB-MYLANLABS-2011S1015175

PATIENT
  Age: 15 Year
  Sex: Female
  Weight: 77 kg

DRUGS (5)
  1. AZATHIOPRINE [Suspect]
     Indication: GLOMERULONEPHRITIS MEMBRANOPROLIFERATIVE
     Route: 048
     Dates: start: 20080901, end: 20110301
  2. PREDNISOLONE [Concomitant]
     Indication: GLOMERULONEPHRITIS MEMBRANOPROLIFERATIVE
     Route: 048
     Dates: start: 20080101
  3. ENALAPRIL MALEATE [Concomitant]
     Indication: GLOMERULONEPHRITIS MEMBRANOPROLIFERATIVE
     Route: 048
     Dates: start: 20080101
  4. FUROSEMIDE [Concomitant]
     Indication: GLOMERULONEPHRITIS MEMBRANOPROLIFERATIVE
     Dates: start: 20080101
  5. LOSARTAN POTASSIUM [Concomitant]
     Indication: GLOMERULONEPHRITIS MEMBRANOPROLIFERATIVE
     Route: 048
     Dates: start: 20100401

REACTIONS (2)
  - HEPATIC CIRRHOSIS [None]
  - PORTAL HYPERTENSION [None]
